FAERS Safety Report 14612363 (Version 2)
Quarter: 2019Q4

REPORT INFORMATION
  Report Type: Spontaneous
  Country: NL (occurrence: NL)
  Receive Date: 20180308
  Receipt Date: 20191017
  Transmission Date: 20200122
  Serious: Yes (Other)
  Sender: FDA-Public Use
  Company Number: NL-AUROBINDO-AUR-APL-2018-011845

PATIENT
  Age: 71 Year
  Sex: Male
  Weight: 110 kg

DRUGS (5)
  1. PRADAXA [Concomitant]
     Active Substance: DABIGATRAN ETEXILATE MESYLATE
     Dosage: ()
     Dates: start: 20141231
  2. SIMVASTATIN AUROBINDO FILM-COATED TABLETS 40MG [Suspect]
     Active Substance: SIMVASTATIN
     Indication: HYPERCHOLESTEROLAEMIA
     Dosage: 40 MILLIGRAM
     Dates: start: 20170406
  3. BARNIDIPINE [Concomitant]
     Active Substance: BARNIDIPINE
     Indication: PRODUCT USED FOR UNKNOWN INDICATION
     Dosage: ()
     Dates: start: 20141231
  4. ENALAPRILMALEAAT [Concomitant]
     Active Substance: ENALAPRIL MALEATE
     Dosage: ()
     Dates: start: 20141231
  5. FUROSEMIDE. [Concomitant]
     Active Substance: FUROSEMIDE
     Dosage: ()
     Dates: start: 20141231

REACTIONS (4)
  - Muscle spasms [Recovered/Resolved]
  - Fluid retention [Recovered/Resolved]
  - Muscle rupture [Recovered/Resolved]
  - Swelling face [Recovered/Resolved]

NARRATIVE: CASE EVENT DATE: 20180126
